FAERS Safety Report 10188769 (Version 1)
Quarter: 2014Q2

REPORT INFORMATION
  Report Type: Spontaneous
  Country: BR (occurrence: BR)
  Receive Date: 20140522
  Receipt Date: 20140522
  Transmission Date: 20141212
  Serious: Yes (Other)
  Sender: FDA-Public Use
  Company Number: BR-PFIZER INC-2014134519

PATIENT
  Age: 73 Year
  Sex: Female

DRUGS (7)
  1. LIPITOR [Suspect]
     Indication: BLOOD CHOLESTEROL
     Dosage: 20 MG, 1X/DAY
     Route: 048
     Dates: start: 20130823
  2. ARADOIS [Concomitant]
     Dosage: 1 TABLET, 2X (UNSPECIFIED FREQUENCY)
     Dates: start: 2012
  3. ASPIRINA PREVENT [Concomitant]
     Dosage: 2 TABLETS, 1X/DAY
     Dates: start: 2012
  4. CLOPIDOGREL [Concomitant]
     Indication: CARDIAC DISORDER
     Dosage: 1 TABLET, 1X/DAY
     Dates: start: 2011
  5. CONCOR [Concomitant]
     Dosage: 10 MG, 2X/DAY
     Dates: start: 2011
  6. MONOCORDIL [Concomitant]
     Dosage: 1 TABLET, 1X/DAY
     Dates: start: 2011
  7. OMEPRAZOLE [Concomitant]
     Dosage: 1 TABLET, 1X/DAY
     Dates: start: 2012

REACTIONS (3)
  - Cardiac disorder [Unknown]
  - Angiopathy [Unknown]
  - Labyrinthitis [Not Recovered/Not Resolved]
